FAERS Safety Report 7988181-4 (Version None)
Quarter: 2011Q4

REPORT INFORMATION
  Report Type: 
  Country: None (occurrence: None)
  Receive Date: 20111216
  Receipt Date: 20110810
  Transmission Date: 20120403
  Serious: No
  Sender: FDA-Public Use
  Company Number: US-BRISTOL-MYERS SQUIBB COMPANY-15439243

PATIENT
  Age: 28 Year
  Sex: Female

DRUGS (2)
  1. ABILIFY [Suspect]
     Indication: BIPOLAR II DISORDER
     Dosage: ONE 2MGTAB 1STDAY,TWO OF THE 2MGTAB NEXT DAY,ONE 5MGTAB FOR WK+THEN TWO OF THE 5MGTAB
  2. MULTI-VITAMINS [Concomitant]

REACTIONS (1)
  - PREGNANCY [None]
